FAERS Safety Report 9703677 (Version 1)
Quarter: 2013Q4

REPORT INFORMATION
  Report Type: Spontaneous
  Country: US (occurrence: US)
  Receive Date: 20131122
  Receipt Date: 20131122
  Transmission Date: 20140711
  Serious: No
  Sender: FDA-Public Use
  Company Number: US-PFIZER INC-2013333481

PATIENT
  Sex: Female

DRUGS (2)
  1. SERTRALINE HCL [Suspect]
     Indication: ANTIDEPRESSANT THERAPY
     Dosage: 200 MG, DAILY (IN A DAY)
     Route: 048
     Dates: start: 1996
  2. SERTRALINE HCL [Suspect]
     Dosage: 200 MG, DAILY (IN A DAY)
     Route: 048

REACTIONS (1)
  - Drug ineffective [Unknown]
